FAERS Safety Report 5018287-3 (Version None)
Quarter: 2006Q2

REPORT INFORMATION
  Report Type: 
  Country: None (occurrence: None)
  Receive Date: 20060530
  Receipt Date: 20060519
  Transmission Date: 20061013
  Serious: Yes (Other)
  Sender: FDA-Public Use
  Company Number: 2006049816

PATIENT
  Age: 55 Year
  Sex: Female
  Weight: 80 kg

DRUGS (10)
  1. DALTEPARIN SODIUM [Suspect]
     Indication: ILL-DEFINED DISORDER
     Dosage: 5000 I.U. (DAILY), INTRAVENOUS
     Route: 042
  2. DALTEPARIN SODIUM [Suspect]
  3. DALTEPARIN SODIUM [Suspect]
  4. CALCIDIA (CALCIUM CARBONATE) [Concomitant]
  5. COZAAR [Concomitant]
  6. DEPAKENE [Concomitant]
  7. INSULIN [Concomitant]
  8. CARDEGIC (ACETYLSALICYLATE LYSINE) [Concomitant]
  9. OMEPRAZOLE [Concomitant]
  10. TENORMIN [Concomitant]

REACTIONS (3)
  - CATHETER RELATED COMPLICATION [None]
  - COAGULOPATHY [None]
  - DRUG EFFECT DECREASED [None]
